FAERS Safety Report 5513381-2 (Version None)
Quarter: 2007Q4

REPORT INFORMATION
  Report Type: 
  Country: None (occurrence: None)
  Receive Date: 20071112
  Receipt Date: 20071031
  Transmission Date: 20080405
  Serious: Yes (Other)
  Sender: FDA-Public Use
  Company Number: GB-PFIZER INC-2007092494

PATIENT
  Age: 14 Year
  Sex: Male

DRUGS (2)
  1. PHENYTOIN SUSPENSION [Suspect]
  2. PARACETAMOL [Suspect]
     Indication: SUICIDE ATTEMPT

REACTIONS (4)
  - DRUG INTERACTION POTENTIATION [None]
  - HEPATIC ENCEPHALOPATHY [None]
  - INTENTIONAL OVERDOSE [None]
  - VOMITING [None]
